FAERS Safety Report 6181655-0 (Version None)
Quarter: 2009Q2

REPORT INFORMATION
  Report Type: 
  Country: None (occurrence: None)
  Receive Date: 20090506
  Receipt Date: 20090428
  Transmission Date: 20091009
  Serious: Yes (Other)
  Sender: FDA-Public Use
  Company Number: A0782625A

PATIENT
  Sex: Male
  Weight: 60.9 kg

DRUGS (1)
  1. LAMIVUDINE [Suspect]
     Indication: HEPATITIS B
     Dosage: 100MG PER DAY
     Dates: start: 19970101

REACTIONS (3)
  - FAT REDISTRIBUTION [None]
  - MUSCLE ATROPHY [None]
  - WEIGHT DECREASED [None]
